FAERS Safety Report 6759908-4 (Version None)
Quarter: 2010Q2

REPORT INFORMATION
  Report Type: 
  Country: None (occurrence: None)
  Receive Date: 20100604
  Receipt Date: 20100520
  Transmission Date: 20101027
  Serious: Yes (Hospitalization)
  Sender: FDA-Public Use
  Company Number: 233149J09USA

PATIENT
  Age: 44 Year
  Sex: Female
  Weight: 111 kg

DRUGS (1)
  1. REBIF [Suspect]
     Indication: MULTIPLE SCLEROSIS
     Dosage: 44 MCG, 3 IN 1 WK, SUBCUTANEOUS
     Route: 058
     Dates: start: 20030821

REACTIONS (8)
  - BENIGN BREAST NEOPLASM [None]
  - BLOOD CHOLESTEROL INCREASED [None]
  - BREAST PAIN [None]
  - BREAST SWELLING [None]
  - ERYTHEMA [None]
  - FEELING HOT [None]
  - INJECTION SITE MASS [None]
  - UTERINE LEIOMYOMA [None]
